FAERS Safety Report 13500831 (Version 3)
Quarter: 2018Q2

REPORT INFORMATION
  Report Type: Spontaneous
  Country: US (occurrence: US)
  Receive Date: 20170501
  Receipt Date: 20180507
  Transmission Date: 20180711
  Serious: Yes (Other)
  Sender: FDA-Public Use
  Company Number: US-ROCHE-1822996

PATIENT
  Age: 81 Year
  Sex: Female

DRUGS (7)
  1. ESBRIET [Suspect]
     Active Substance: PIRFENIDONE
     Route: 048
     Dates: start: 20160630
  2. ESBRIET [Suspect]
     Active Substance: PIRFENIDONE
     Route: 048
     Dates: start: 20161120
  3. ESBRIET [Suspect]
     Active Substance: PIRFENIDONE
     Indication: PULMONARY ARTERIAL HYPERTENSION
     Dosage: LOWERED AFTERNOON DOSE TO 534 MG?801MG - 534MG - 801 MG
     Route: 048
     Dates: start: 20160814
  4. ESBRIET [Suspect]
     Active Substance: PIRFENIDONE
     Indication: PULMONARY HYPERTENSION
     Route: 048
     Dates: start: 20160712, end: 20160908
  5. TYVASO [Suspect]
     Active Substance: TREPROSTINIL
     Indication: PULMONARY ARTERIAL HYPERTENSION
     Dosage: 0.6MG/ML
     Route: 055
     Dates: start: 20150608
  6. ESBRIET [Suspect]
     Active Substance: PIRFENIDONE
     Indication: PULMONARY FIBROSIS
     Route: 048
     Dates: start: 20160810, end: 20160814
  7. ESBRIET [Suspect]
     Active Substance: PIRFENIDONE
     Route: 048
     Dates: start: 20161109

REACTIONS (15)
  - Insomnia [Unknown]
  - Diarrhoea [Not Recovered/Not Resolved]
  - Abdominal pain upper [Unknown]
  - Dyspnoea [Unknown]
  - Peripheral swelling [Unknown]
  - Fluid retention [Unknown]
  - Off label use [Unknown]
  - Drug intolerance [Unknown]
  - Joint swelling [Unknown]
  - Hypotension [Unknown]
  - Nausea [Not Recovered/Not Resolved]
  - Nausea [Recovering/Resolving]
  - Tinnitus [Unknown]
  - Vomiting [Unknown]
  - Weight abnormal [Unknown]

NARRATIVE: CASE EVENT DATE: 20160810
